FAERS Safety Report 5099019-X (Version None)
Quarter: 2006Q3

REPORT INFORMATION
  Report Type: 
  Country: None (occurrence: None)
  Receive Date: 20060731
  Receipt Date: 20060510
  Transmission Date: 20061208
  Serious: No
  Sender: FDA-Public Use
  Company Number: 224762

PATIENT
  Age: 40 Year
  Sex: Female
  Weight: 57.6 kg

DRUGS (4)
  1. HERCEPTIN [Suspect]
     Indication: BREAST CANCER
     Dosage: 114 MG, 1/WEEK, INTRAVENOUS
     Route: 042
     Dates: start: 20050812, end: 20051014
  2. BENADRYL [Concomitant]
  3. DECADRON [Concomitant]
  4. TAGAMET [Concomitant]

REACTIONS (2)
  - EJECTION FRACTION DECREASED [None]
  - TACHYCARDIA [None]
